FAERS Safety Report 11173557 (Version 3)
Quarter: 2015Q3

REPORT INFORMATION
  Report Type: Spontaneous
  Country: US (occurrence: US)
  Receive Date: 20150609
  Receipt Date: 20150707
  Transmission Date: 20151125
  Serious: Yes (Death, Life-Threatening, Other)
  Sender: FDA-Public Use
  Company Number: US-009507513-1506USA001409

PATIENT
  Age: 69 Year
  Sex: Male

DRUGS (1)
  1. NOXAFIL [Suspect]
     Active Substance: POSACONAZOLE
     Dosage: 200 MG, TID
     Route: 048
     Dates: start: 20150501, end: 201505

REACTIONS (1)
  - Acute leukaemia [Fatal]

NARRATIVE: CASE EVENT DATE: 201505
